FAERS Safety Report 20725465 (Version 2)
Quarter: 2022Q2

REPORT INFORMATION
  Report Type: Report from Study
  Country: IN (occurrence: None)
  Receive Date: 20220419
  Receipt Date: 20220421
  Transmission Date: 20220720
  Serious: Yes (Death, Other)
  Sender: FDA-Public Use
  Company Number: 2022A149971

PATIENT
  Age: 58 Year
  Sex: Female
  Weight: 38 kg

DRUGS (1)
  1. LYNPARZA [Suspect]
     Active Substance: OLAPARIB
     Indication: Ovarian cancer
     Route: 048
     Dates: start: 20210921, end: 20211222

REACTIONS (2)
  - Death [Fatal]
  - Malignant neoplasm progression [Unknown]
